FAERS Safety Report 18081114 (Version 1)
Quarter: 2020Q3

REPORT INFORMATION
  Report Type: Spontaneous
  Country: JP (occurrence: JP)
  Receive Date: 20200728
  Receipt Date: 20200728
  Transmission Date: 20201103
  Serious: Yes (Death, Other)
  Sender: FDA-Public Use
  Company Number: JP-BRACCO-2020JP01920

PATIENT
  Age: 55 Year
  Sex: Male

DRUGS (9)
  1. SAMSCA [Concomitant]
     Active Substance: TOLVAPTAN
     Indication: POLYURIA
     Dosage: DAILY DOSE 7.5 MG
     Route: 048
     Dates: start: 20200422, end: 20200430
  2. BISOPROLOL [Concomitant]
     Active Substance: BISOPROLOL
     Indication: HYPERTENSION
     Dosage: UNK
     Dates: start: 20200427, end: 20200501
  3. PRECEDEX [Concomitant]
     Active Substance: DEXMEDETOMIDINE HYDROCHLORIDE
     Indication: SEDATION
     Dosage: DAILY DOSE 144 ML
     Route: 041
     Dates: start: 20200424, end: 20200501
  4. ESOMEPRAZOLE. [Concomitant]
     Active Substance: ESOMEPRAZOLE MAGNESIUM
     Indication: GASTRIC DISORDER
     Dosage: UNK
     Dates: start: 20200428, end: 20200501
  5. IOPAMIRON [Suspect]
     Active Substance: IOPAMIDOL
     Indication: COMPUTERISED TOMOGRAM
     Dosage: 76 ML, SINGLE
     Route: 042
     Dates: start: 20200501, end: 20200501
  6. FUROSEMIDE. [Concomitant]
     Active Substance: FUROSEMIDE
     Indication: POLYURIA
     Dosage: DAILY DOSE 20 MG
     Route: 048
     Dates: start: 20200425, end: 20200501
  7. AMLODIPINE [Concomitant]
     Active Substance: AMLODIPINE BESYLATE
     Indication: HYPERTENSION
     Dosage: DAILY DOSE 2.5 MG
     Route: 048
     Dates: start: 20200428, end: 20200501
  8. SPIRONOLACTONE. [Concomitant]
     Active Substance: SPIRONOLACTONE
     Indication: POLYURIA
     Dosage: DAILY DOSE 25 MG
     Route: 048
     Dates: start: 20200427, end: 20200501
  9. TAZOPIPE [Concomitant]
     Active Substance: PIPERACILLIN SODIUM\TAZOBACTAM SODIUM
     Dosage: 4.5 G, TID
     Route: 041
     Dates: start: 20200424, end: 20200501

REACTIONS (3)
  - Anaphylactic shock [Recovered/Resolved]
  - Aortic dissection [None]
  - Aortic aneurysm rupture [None]

NARRATIVE: CASE EVENT DATE: 20200501
